FAERS Safety Report 9198452 (Version 1)
Quarter: 2013Q1

REPORT INFORMATION
  Report Type: Spontaneous
  Country: US (occurrence: None)
  Receive Date: 20120709
  Receipt Date: 20120709
  Transmission Date: 20140127
  Serious: Yes (Other)
  Sender: FDA-Public Use
  Company Number: PHHY2011US56315

PATIENT
  Sex: Male
  Weight: 83.9 kg

DRUGS (9)
  1. GLEEVEC (IMATINIB) [Suspect]
     Route: 048
  2. COUMADINE (WARFARUB SODIUM ) TABLET [Concomitant]
  3. DIGOXIN (DIGOXIN) [Concomitant]
  4. ANTACIDS (NO INGREDIENTS/SUBSTANCES) [Concomitant]
  5. COMBIVENT (IPRATROPIUM BROMIDE, SALBUTAMOL SULFATE) [Concomitant]
  6. FLOMAX (TAMSULOSIN HYDROCHLORIDE) [Concomitant]
  7. SPIRIVA (TIOTROPIUM BROMIDE) [Concomitant]
  8. BETAPACE (SOTALOL HYDROCHLORIDE) [Concomitant]
  9. BABY ASPIRIN (ACETYLSALICYLIC ACID) [Concomitant]

REACTIONS (3)
  - Depression [None]
  - Abdominal discomfort [None]
  - Weight decreased [None]
